FAERS Safety Report 13793032 (Version 1)
Quarter: 2017Q3

REPORT INFORMATION
  Report Type: Report from Study
  Country: US (occurrence: US)
  Receive Date: 20170726
  Receipt Date: 20170726
  Transmission Date: 20171127
  Serious: No
  Sender: FDA-Public Use
  Company Number: US-MITSUBISHI TANABE PHARMA CORPORATION-MPE2017-0016376

PATIENT
  Age: 52 Year
  Sex: Male
  Weight: 80.29 kg

DRUGS (3)
  1. EDARAVONE [Suspect]
     Active Substance: EDARAVONE
     Indication: AMYOTROPHIC LATERAL SCLEROSIS
     Route: 065
     Dates: start: 201706, end: 201706
  2. EDARAVONE [Suspect]
     Active Substance: EDARAVONE
     Route: 065
     Dates: start: 201707, end: 20170714
  3. RILUZOLE. [Suspect]
     Active Substance: RILUZOLE
     Route: 065
     Dates: start: 201706

REACTIONS (2)
  - Fatigue [Not Recovered/Not Resolved]
  - Asthenia [Not Recovered/Not Resolved]

NARRATIVE: CASE EVENT DATE: 201706
